FAERS Safety Report 8453795-4 (Version None)
Quarter: 2012Q2

REPORT INFORMATION
  Report Type: 
  Country: None (occurrence: None)
  Receive Date: 20120620
  Receipt Date: 20120614
  Transmission Date: 20120825
  Serious: Yes (Other)
  Sender: FDA-Public Use
  Company Number: US-ELI_LILLY_AND_COMPANY-US201206005246

PATIENT
  Sex: Male

DRUGS (3)
  1. CIALIS [Suspect]
     Indication: ERECTILE DYSFUNCTION
     Dosage: 20 MG, PRN
  2. PRILOSEC [Concomitant]
  3. BENICAR [Concomitant]

REACTIONS (2)
  - DEAFNESS UNILATERAL [None]
  - DEAFNESS NEUROSENSORY [None]
